FAERS Safety Report 21847824 (Version 2)
Quarter: 2023Q1

REPORT INFORMATION
  Report Type: Spontaneous
  Country: US (occurrence: US)
  Receive Date: 20230111
  Receipt Date: 20230201
  Transmission Date: 20230418
  Serious: No
  Sender: FDA-Public Use
  Company Number: US-SA-SAC20230110000248

PATIENT
  Age: 35 Year
  Sex: Male

DRUGS (1)
  1. DUPIXENT [Suspect]
     Active Substance: DUPILUMAB
     Dosage: 300 MG, FREQUENCY: OTHER

REACTIONS (2)
  - Injection site erythema [Unknown]
  - Rash erythematous [Recovered/Resolved]

NARRATIVE: CASE EVENT DATE: 20221101
